FAERS Safety Report 16098291 (Version 24)
Quarter: 2020Q3

REPORT INFORMATION
  Report Type: Report from Study
  Country: CA (occurrence: CA)
  Receive Date: 20190321
  Receipt Date: 20200902
  Transmission Date: 20201102
  Serious: Yes (Hospitalization, Other)
  Sender: FDA-Public Use
  Company Number: CA-BRISTOL-MYERS SQUIBB COMPANY-BMS-2017-091711

PATIENT
  Age: 37 Year
  Sex: Female

DRUGS (8)
  1. FOLIC ACID. [Concomitant]
     Active Substance: FOLIC ACID
     Indication: PRODUCT USED FOR UNKNOWN INDICATION
     Dosage: UNK, 6/7 DAYS
     Route: 065
  2. CITALOPRAM [Concomitant]
     Active Substance: CITALOPRAM HYDROBROMIDE
     Indication: PRODUCT USED FOR UNKNOWN INDICATION
     Dosage: UNK
     Route: 065
  3. ABATACEPT [Suspect]
     Active Substance: ABATACEPT
     Indication: RHEUMATOID ARTHRITIS
     Dosage: 750 MG, Q4WK
     Route: 042
     Dates: start: 20160120
  4. PANTOPRAZOLE [Concomitant]
     Active Substance: PANTOPRAZOLE
     Indication: PRODUCT USED FOR UNKNOWN INDICATION
     Dosage: UNK
     Route: 065
  5. CIPRALEX [Concomitant]
     Active Substance: ESCITALOPRAM OXALATE
     Indication: PRODUCT USED FOR UNKNOWN INDICATION
     Dosage: UNK UNK, QD
     Route: 065
  6. ALESSE 28 [Concomitant]
     Active Substance: ETHINYL ESTRADIOL\LEVONORGESTREL
     Indication: PRODUCT USED FOR UNKNOWN INDICATION
     Dosage: UNK UNK, QD
     Route: 065
  7. AERIUS [EBASTINE] [Concomitant]
     Active Substance: EBASTINE
     Indication: PRODUCT USED FOR UNKNOWN INDICATION
     Dosage: UNK UNK, QD
     Route: 065
  8. METHOTREXATE. [Concomitant]
     Active Substance: METHOTREXATE
     Indication: PRODUCT USED FOR UNKNOWN INDICATION
     Dosage: UNK
     Route: 065

REACTIONS (35)
  - Tear discolouration [Unknown]
  - Productive cough [Unknown]
  - Vulvovaginal discomfort [Recovering/Resolving]
  - Pain in extremity [Unknown]
  - Vulvovaginal mycotic infection [Unknown]
  - Fatigue [Not Recovered/Not Resolved]
  - Cryptosporidiosis infection [Unknown]
  - Sinusitis [Recovered/Resolved]
  - Cystitis [Not Recovered/Not Resolved]
  - Pain [Recovered/Resolved]
  - Headache [Unknown]
  - Secretion discharge [Not Recovered/Not Resolved]
  - Ligament sprain [Unknown]
  - Nausea [Unknown]
  - Bacterial vaginosis [Unknown]
  - Arthralgia [Not Recovered/Not Resolved]
  - Infection [Unknown]
  - Respiratory tract congestion [Not Recovered/Not Resolved]
  - Animal bite [Unknown]
  - Pyrexia [Recovered/Resolved]
  - Abdominal pain [Unknown]
  - Influenza [Unknown]
  - Diarrhoea haemorrhagic [Unknown]
  - Oropharyngeal pain [Not Recovered/Not Resolved]
  - Odynophagia [Unknown]
  - Influenza like illness [Recovering/Resolving]
  - Diarrhoea [Unknown]
  - Abdominal pain upper [Unknown]
  - Bacterial infection [Recovered/Resolved]
  - Fall [Recovering/Resolving]
  - Urinary tract infection [Not Recovered/Not Resolved]
  - Increased upper airway secretion [Not Recovered/Not Resolved]
  - Wrist fracture [Recovering/Resolving]
  - Rheumatoid arthritis [Unknown]
  - Arthralgia [Unknown]

NARRATIVE: CASE EVENT DATE: 20171011
